FAERS Safety Report 16569900 (Version 1)
Quarter: 2019Q3

REPORT INFORMATION
  Report Type: Spontaneous
  Country: ES (occurrence: ES)
  Receive Date: 20190715
  Receipt Date: 20190715
  Transmission Date: 20191004
  Serious: Yes (Other)
  Sender: FDA-Public Use
  Company Number: ES-B.I. PHARMACEUTICALS,INC./RIDGEFIELD-2019-12-002122

PATIENT
  Age: 70 Year
  Sex: Female

DRUGS (3)
  1. MIRAPEXIN [Interacting]
     Active Substance: PRAMIPEXOLE
     Dosage: MIRAPEXIN 2,1 MG COMPRIMIDOS DE LIBERACION PROLONGADA, 30 COMPRIMIDOS
     Route: 048
     Dates: start: 2016, end: 20190613
  2. MIRAPEXIN [Suspect]
     Active Substance: PRAMIPEXOLE
     Indication: RESTLESS LEGS SYNDROME
     Dosage: MIRAPEXIN 1,05 MG COMPRIMIDOS DE LIBERACION PROLONGADA, 30 COMPRIMIDOS
     Route: 048
     Dates: start: 2016, end: 20190613
  3. OPRYMEA [Interacting]
     Active Substance: PRAMIPEXOLE DIHYDROCHLORIDE
     Indication: RESTLESS LEGS SYNDROME
     Route: 048
     Dates: start: 2016

REACTIONS (7)
  - Asthenia [Unknown]
  - Hallucination [Unknown]
  - Oedema [Unknown]
  - Product substitution error [Unknown]
  - Compulsive shopping [Unknown]
  - Somnolence [Unknown]
  - Abnormal weight gain [Unknown]

NARRATIVE: CASE EVENT DATE: 2016
